FAERS Safety Report 11127282 (Version 1)
Quarter: 2015Q2

REPORT INFORMATION
  Report Type: Spontaneous
  Country: US (occurrence: None)
  Receive Date: 20150520
  Receipt Date: 20150520
  Transmission Date: 20150821
  Serious: Yes (Other)
  Sender: FDA-Public Use
  Company Number: None

PATIENT
  Age: 71 Year
  Sex: Female
  Weight: 79.38 kg

DRUGS (22)
  1. HYDROCORDONE/CPM SUSP. 10-8MG/5ML PAR [Suspect]
     Active Substance: CHLORPHENIRAMINE MALEATE\HYDROCODONE BITARTRATE
     Indication: BRONCHITIS
     Route: 048
     Dates: start: 20150415, end: 20150418
  2. LEVEMIR [Concomitant]
     Active Substance: INSULIN DETEMIR
  3. AMLODOPINE [Concomitant]
  4. ASPIRIN. [Concomitant]
     Active Substance: ASPIRIN
  5. MULTIVITAMIN [Concomitant]
     Active Substance: VITAMINS
  6. VITAMIN C [Concomitant]
     Active Substance: ASCORBIC ACID
  7. HYDROCORDONE/CPM SUSP. 10-8MG/5ML PAR [Suspect]
     Active Substance: CHLORPHENIRAMINE MALEATE\HYDROCODONE BITARTRATE
     Indication: COUGH
     Route: 048
     Dates: start: 20150415, end: 20150418
  8. ANALAPRIL [Concomitant]
  9. PREDNISONE. [Concomitant]
     Active Substance: PREDNISONE
  10. FISH OIL [Concomitant]
     Active Substance: FISH OIL
  11. HUMALOG [Concomitant]
     Active Substance: INSULIN LISPRO
  12. SIMVASTATIN. [Concomitant]
     Active Substance: SIMVASTATIN
  13. METFORMIN [Concomitant]
     Active Substance: METFORMIN HYDROCHLORIDE
  14. OMEPRAZOLE. [Concomitant]
     Active Substance: OMEPRAZOLE
  15. XALATAN [Concomitant]
     Active Substance: LATANOPROST
  16. AZIRTHOMYCIN [Concomitant]
  17. LEVOTHYROXINE [Concomitant]
     Active Substance: LEVOTHYROXINE
  18. BUMETANIDE. [Concomitant]
     Active Substance: BUMETANIDE
  19. ALBUTEROL INHALER [Concomitant]
     Active Substance: ALBUTEROL
  20. CALCIUM [Concomitant]
     Active Substance: CALCIUM
  21. VITAMIN E [Concomitant]
     Active Substance: .ALPHA.-TOCOPHEROL
  22. VITAMIN D [Concomitant]
     Active Substance: CHOLECALCIFEROL

REACTIONS (4)
  - Cough [None]
  - Liquid product physical issue [None]
  - Drug effect decreased [None]
  - Dyspnoea [None]

NARRATIVE: CASE EVENT DATE: 20150415
